FAERS Safety Report 7301297-0 (Version None)
Quarter: 2010Q4

REPORT INFORMATION
  Report Type: 
  Country: None (occurrence: None)
  Receive Date: 20101229
  Receipt Date: 20101104
  Transmission Date: 20110411
  Serious: No
  Sender: FDA-Public Use
  Company Number: 1000017185

PATIENT
  Age: 32 Year
  Sex: Female

DRUGS (1)
  1. BYSTOLIC [Suspect]
     Indication: HYPERTENSION
     Dosage: 5 MG (5 MG, 1 IN 1 D), ORAL
     Route: 048
     Dates: start: 20100301, end: 20101104

REACTIONS (4)
  - DEHYDRATION [None]
  - HEADACHE [None]
  - HEART RATE DECREASED [None]
  - VOMITING [None]
